FAERS Safety Report 21065732 (Version 2)
Quarter: 2022Q3

REPORT INFORMATION
  Report Type: Spontaneous
  Country: DE (occurrence: DE)
  Receive Date: 20220711
  Receipt Date: 20220714
  Transmission Date: 20221027
  Serious: Yes (Death, Hospitalization, Other)
  Sender: FDA-Public Use
  Company Number: DE-SANOFI-01177388

PATIENT
  Age: 76 Year
  Sex: Male

DRUGS (3)
  1. LIBTAYO [Suspect]
     Active Substance: CEMIPLIMAB-RWLC
     Indication: Product used for unknown indication
     Dosage: UNK
  2. LIBTAYO [Suspect]
     Active Substance: CEMIPLIMAB-RWLC
     Dosage: UNK
     Dates: start: 20200716
  3. LIBTAYO [Suspect]
     Active Substance: CEMIPLIMAB-RWLC
     Dosage: UNK
     Dates: start: 20200804, end: 20200814

REACTIONS (27)
  - General physical condition abnormal [Fatal]
  - Hypotension [Unknown]
  - Delirium [Unknown]
  - Gait inability [Unknown]
  - Hypotony of eye [Unknown]
  - Erysipelas [Unknown]
  - Chronic kidney disease [Unknown]
  - Dehydration [Unknown]
  - Femoral neck fracture [Unknown]
  - Atrial fibrillation [Unknown]
  - Tachyarrhythmia [Unknown]
  - Dyspnoea [Unknown]
  - Urinary tract infection [Unknown]
  - Pneumonia [Unknown]
  - Anaemia [Unknown]
  - Renal impairment [Unknown]
  - Acute kidney injury [Unknown]
  - Psoriatic arthropathy [Unknown]
  - Dementia [Unknown]
  - Encephalitis autoimmune [Unknown]
  - Polyneuropathy [Unknown]
  - Lymphoma [Unknown]
  - Leukoencephalopathy [Unknown]
  - Cerebral atrophy [Unknown]
  - Hippocampal atrophy [Unknown]
  - Diabetic neuropathy [Unknown]
  - Urinary incontinence [Unknown]

NARRATIVE: CASE EVENT DATE: 20200728
